FAERS Safety Report 14586289 (Version 2)
Quarter: 2018Q2

REPORT INFORMATION
  Report Type: Report from Study
  Country: FR (occurrence: FR)
  Receive Date: 20180301
  Receipt Date: 20180420
  Transmission Date: 20180711
  Serious: Yes (Hospitalization)
  Sender: FDA-Public Use
  Company Number: FR-CELGENEUS-FRA-20180207641

PATIENT
  Age: 73 Year
  Sex: Female
  Weight: 74 kg

DRUGS (8)
  1. AZACITIDINE. [Suspect]
     Active Substance: AZACITIDINE
     Route: 058
     Dates: start: 20180125, end: 20180202
  2. IDARUBICIN [Suspect]
     Active Substance: IDARUBICIN
     Indication: MYELODYSPLASTIC SYNDROME
     Route: 041
     Dates: start: 20170712, end: 20171124
  3. IDARUBICIN [Suspect]
     Active Substance: IDARUBICIN
     Route: 041
     Dates: start: 20180409, end: 20180409
  4. IDARUBICIN [Suspect]
     Active Substance: IDARUBICIN
     Route: 041
     Dates: start: 20171125
  5. AZACITIDINE. [Suspect]
     Active Substance: AZACITIDINE
     Indication: MYELODYSPLASTIC SYNDROME
     Route: 058
     Dates: start: 20170703, end: 20171123
  6. IDARUBICIN [Suspect]
     Active Substance: IDARUBICIN
     Route: 041
     Dates: start: 20180205, end: 20180205
  7. AZACITIDINE. [Suspect]
     Active Substance: AZACITIDINE
     Route: 058
     Dates: start: 20171125
  8. AZACITIDINE. [Suspect]
     Active Substance: AZACITIDINE
     Route: 058
     Dates: start: 20180125, end: 20180202

REACTIONS (2)
  - Haematuria [Recovered/Resolved]
  - Urinary bladder polyp [Recovered/Resolved]

NARRATIVE: CASE EVENT DATE: 20180116
